FAERS Safety Report 8615498-2 (Version None)
Quarter: 2012Q3

REPORT INFORMATION
  Report Type: 
  Country: None (occurrence: None)
  Receive Date: 20120823
  Receipt Date: 20120813
  Transmission Date: 20120928
  Serious: Yes (Life-Threatening, Hospitalization)
  Sender: FDA-Public Use
  Company Number: US-MERCK-1208USA005703

PATIENT

DRUGS (9)
  1. RITUXIMAB [Suspect]
     Indication: DIFFUSE LARGE B-CELL LYMPHOMA
     Dosage: 375 MG/M2, ONCE, ON DAY 3
     Route: 042
     Dates: start: 20120725
  2. CYCLOPHOSPHAMIDE [Suspect]
     Indication: DIFFUSE LARGE B-CELL LYMPHOMA
     Dosage: 750 MG/M2, ONCE, ON DAY 3
     Dates: start: 20120725
  3. SIMVASTATIN [Suspect]
     Indication: DIFFUSE LARGE B-CELL LYMPHOMA
     Dosage: 400 MG, QD, ON DAYS 1-5
     Dates: start: 20120723, end: 20120727
  4. PREDNISONE TAB [Suspect]
     Indication: DIFFUSE LARGE B-CELL LYMPHOMA
     Dosage: 100 MG, QD, ON DAYS 3-7
     Route: 048
     Dates: start: 20120725, end: 20120729
  5. BLINDED VORINOSTAT [Suspect]
     Indication: DIFFUSE LARGE B-CELL LYMPHOMA
     Dosage: 400 MG, QD, ON DAYS 1-5
     Dates: start: 20120723, end: 20120727
  6. SIMVASTATIN [Suspect]
     Indication: DIFFUSE LARGE B-CELL LYMPHOMA
     Dosage: 400 MG, QD, ON DAYS 1-5
     Dates: start: 20120723, end: 20120727
  7. DOXORUBICIN HYDROCHLORIDE [Suspect]
     Indication: DIFFUSE LARGE B-CELL LYMPHOMA
     Dosage: 50 MG/M2, ONCE, ON DAY 3
     Route: 042
     Dates: start: 20120725
  8. PLACEBO [Suspect]
     Indication: DIFFUSE LARGE B-CELL LYMPHOMA
     Dosage: 400 MG, QD, ON DAYS 1-5
     Dates: start: 20120723, end: 20120727
  9. VINCRISTINE SULFATE [Suspect]
     Indication: DIFFUSE LARGE B-CELL LYMPHOMA
     Dosage: 1.4 MG, ONCE, ON DAY 3
     Route: 042
     Dates: start: 20120725

REACTIONS (8)
  - SEPSIS [None]
  - ENCEPHALOPATHY [None]
  - CYSTITIS [None]
  - CONFUSIONAL STATE [None]
  - WHITE BLOOD CELL COUNT DECREASED [None]
  - PLATELET COUNT DECREASED [None]
  - NEUTROPHIL COUNT DECREASED [None]
  - FEBRILE NEUTROPENIA [None]
